FAERS Safety Report 5355426-9 (Version None)
Quarter: 2007Q2

REPORT INFORMATION
  Report Type: 
  Country: None (occurrence: None)
  Receive Date: 20070530
  Receipt Date: 20070117
  Transmission Date: 20071010
  Serious: Yes (Hospitalization, Other)
  Sender: FDA-Public Use
  Company Number: US200609003511

PATIENT
  Age: 30 Year
  Sex: Female
  Weight: 76.2 kg

DRUGS (6)
  1. ZYPREXA [Suspect]
     Dosage: 7.5 MG
     Dates: start: 19980101, end: 20050101
  2. SEROQUEL [Concomitant]
  3. RISPERDAL /SWE/(RISPERIDONE) [Concomitant]
  4. GEODON [Concomitant]
  5. DEPAKOTE [Concomitant]
  6. LITHIUM CARBONATE [Concomitant]

REACTIONS (7)
  - DIABETES MELLITUS [None]
  - DRUG EXPOSURE DURING PREGNANCY [None]
  - HEPATITIS [None]
  - HYPERTENSION [None]
  - METABOLIC DISORDER [None]
  - PANCREATITIS [None]
  - VISION BLURRED [None]
